FAERS Safety Report 5212663-1 (Version None)
Quarter: 2006Q4

REPORT INFORMATION
  Report Type: 
  Country: None (occurrence: None)
  Receive Date: 20061114
  Receipt Date: 20061010
  Transmission Date: 20070319
  Serious: No
  Sender: FDA-Public Use
  Company Number: S06-USA-04211-01

PATIENT
  Age: 87 Year
  Sex: Female

DRUGS (2)
  1. NAMENDA [Suspect]
     Indication: DEMENTIA
     Dates: start: 20060919
  2. SEROQUEL [Concomitant]

REACTIONS (3)
  - AGGRESSION [None]
  - ASTHENIA [None]
  - LISTLESS [None]
